FAERS Safety Report 15603187 (Version 1)
Quarter: 2018Q4

REPORT INFORMATION
  Report Type: Spontaneous
  Country: US (occurrence: US)
  Receive Date: 20181109
  Receipt Date: 20181109
  Transmission Date: 20190205
  Serious: Yes (Other)
  Sender: FDA-Public Use
  Company Number: None

PATIENT
  Age: 51 Year
  Sex: Female
  Weight: 45.9 kg

DRUGS (1)
  1. AIMOVIG [Suspect]
     Active Substance: ERENUMAB-AOOE
     Indication: MIGRAINE
     Dosage: ?          QUANTITY:1 INJECTION(S);OTHER FREQUENCY:1X PER MONTH;?
     Route: 058
     Dates: start: 20181022

REACTIONS (5)
  - Dysuria [None]
  - Bladder pain [None]
  - Micturition urgency [None]
  - Abdominal pain upper [None]
  - Cystitis [None]

NARRATIVE: CASE EVENT DATE: 20181108
